FAERS Safety Report 17227903 (Version 3)
Quarter: 2020Q2

REPORT INFORMATION
  Report Type: Report from Study
  Country: None (occurrence: US)
  Receive Date: 20200103
  Receipt Date: 20200402
  Transmission Date: 20200713
  Serious: Yes (Hospitalization)
  Sender: FDA-Public Use
  Company Number: US-ABBVIE-19K-163-3133639-00

PATIENT
  Age: 76 Year
  Sex: Male

DRUGS (10)
  1. IMBRUVICA [Suspect]
     Active Substance: IBRUTINIB
     Dosage: 140 MG, QD
     Route: 048
     Dates: start: 201901
  2. IMBRUVICA [Suspect]
     Active Substance: IBRUTINIB
     Route: 048
     Dates: start: 20190108
  3. IMBRUVICA [Suspect]
     Active Substance: IBRUTINIB
     Dosage: 280 MG, QD
     Route: 048
     Dates: start: 20190203, end: 20190208
  4. IMBRUVICA [Suspect]
     Active Substance: IBRUTINIB
     Indication: CHRONIC LYMPHOCYTIC LEUKAEMIA
     Dosage: 280 MG, QD
     Route: 048
     Dates: start: 20190108
  5. IMBRUVICA [Suspect]
     Active Substance: IBRUTINIB
     Route: 048
  6. IMATINIB. [Suspect]
     Active Substance: IMATINIB MESYLATE
     Dosage: 400 MG, QD
     Route: 048
     Dates: start: 20160926
  7. IMATINIB. [Suspect]
     Active Substance: IMATINIB MESYLATE
     Indication: CHRONIC LYMPHOCYTIC LEUKAEMIA
     Dosage: 400 MG, QD
     Route: 048
     Dates: start: 201609
  8. IMBRUVICA [Suspect]
     Active Substance: IBRUTINIB
     Dosage: 280 MG, QD
     Route: 048
     Dates: start: 20190208
  9. INMUNOGLOBULIN G [Suspect]
     Active Substance: HUMAN IMMUNOGLOBULIN G
     Indication: PRODUCT USED FOR UNKNOWN INDICATION
     Dosage: UNK
     Route: 065
     Dates: start: 20190204
  10. IMBRUVICA [Suspect]
     Active Substance: IBRUTINIB
     Dosage: 140 MG, UNK
     Route: 048
     Dates: start: 20190130

REACTIONS (15)
  - Incorrect dose administered [Unknown]
  - Oedema peripheral [Unknown]
  - Clostridium difficile infection [Unknown]
  - Fluid retention [Recovered/Resolved]
  - Urinary tract infection staphylococcal [Not Recovered/Not Resolved]
  - Urinary tract infection [Unknown]
  - Cough [Unknown]
  - Cystitis [Not Recovered/Not Resolved]
  - Laboratory test abnormal [Unknown]
  - Weight increased [Unknown]
  - Wound [Recovering/Resolving]
  - Hypersomnia [Not Recovered/Not Resolved]
  - Rash [Unknown]
  - Skin tightness [Unknown]
  - Staphylococcal infection [Not Recovered/Not Resolved]

NARRATIVE: CASE EVENT DATE: 20190108
